FAERS Safety Report 11083316 (Version 1)
Quarter: 2015Q2

REPORT INFORMATION
  Report Type: Report from Study
  Country: US (occurrence: US)
  Receive Date: 20150501
  Receipt Date: 20150501
  Transmission Date: 20150821
  Serious: No
  Sender: FDA-Public Use
  Company Number: US-ABBVIE-15P-163-1351770-00

PATIENT
  Age: 53 Year
  Sex: Male
  Weight: 138.47 kg

DRUGS (8)
  1. TOPROL XL [Concomitant]
     Active Substance: METOPROLOL SUCCINATE
     Indication: HYPERTENSION
  2. PRILOSEC [Concomitant]
     Active Substance: OMEPRAZOLE MAGNESIUM
     Indication: DYSPEPSIA
  3. SYNTHROID [Concomitant]
     Active Substance: LEVOTHYROXINE SODIUM
     Indication: HYPOTHYROIDISM
  4. ANDROGEL [Suspect]
     Active Substance: TESTOSTERONE
     Indication: BLOOD TESTOSTERONE DECREASED
     Dosage: 2 PUMPS DAILY
     Route: 061
     Dates: start: 2010, end: 201411
  5. AMLODIPINE [Concomitant]
     Active Substance: AMLODIPINE BESYLATE
     Indication: HYPERTENSION
  6. ANDROGEL [Suspect]
     Active Substance: TESTOSTERONE
     Dosage: 2 PUMPS DAILY
     Route: 061
     Dates: start: 201502
  7. HYDROCHLOROTHIAZIDE. [Concomitant]
     Active Substance: HYDROCHLOROTHIAZIDE
     Indication: HYPERTENSION
  8. CALCIUM [Concomitant]
     Active Substance: CALCIUM
     Indication: CALCIUM DEFICIENCY

REACTIONS (2)
  - Fatigue [Recovering/Resolving]
  - Blood testosterone decreased [Unknown]

NARRATIVE: CASE EVENT DATE: 201411
